FAERS Safety Report 10410295 (Version 2)
Quarter: 2014Q3

REPORT INFORMATION
  Report Type: Report from Study
  Country: US (occurrence: US)
  Receive Date: 20140826
  Receipt Date: 20140826
  Transmission Date: 20150326
  Serious: Yes (Hospitalization)
  Sender: FDA-Public Use
  Company Number: US-SA-2014SA053014

PATIENT
  Age: 51 Year
  Sex: Female

DRUGS (3)
  1. AUBAGIO [Suspect]
     Active Substance: TERIFLUNOMIDE
     Indication: MULTIPLE SCLEROSIS
     Route: 048
  2. CORTICOSTEROIDS [Concomitant]
     Active Substance: CORTICOSTEROID NOS
  3. AUBAGIO [Suspect]
     Active Substance: TERIFLUNOMIDE
     Indication: MULTIPLE SCLEROSIS
     Route: 048
     Dates: start: 20131104, end: 201401

REACTIONS (5)
  - Gastrointestinal tube insertion [Unknown]
  - Mobility decreased [Unknown]
  - Drug dose omission [Unknown]
  - Neoplasm malignant [Not Recovered/Not Resolved]
  - Multiple sclerosis [Not Recovered/Not Resolved]
